FAERS Safety Report 6108525-8 (Version None)
Quarter: 2009Q1

REPORT INFORMATION
  Report Type: 
  Country: None (occurrence: None)
  Receive Date: 20090309
  Receipt Date: 20090303
  Transmission Date: 20090719
  Serious: Yes (Hospitalization)
  Sender: FDA-Public Use
  Company Number: HR-WYE-H08423909

PATIENT
  Sex: Male

DRUGS (5)
  1. AMIODARONE [Suspect]
     Indication: ATRIAL FIBRILLATION
     Dosage: 300 MG
     Route: 042
     Dates: start: 20090225, end: 20090225
  2. ADRENALINE [Concomitant]
     Dosage: UNKNOWN
     Dates: start: 20090225
  3. NITROGLYCERIN [Concomitant]
     Dosage: UNKNOWN
     Dates: start: 20090225
  4. DOBUTAMINE HCL [Concomitant]
     Dosage: UNKNOWN
     Dates: start: 20090225
  5. MILRINONE [Concomitant]
     Dosage: UNKNOWN
     Dates: start: 20090225

REACTIONS (6)
  - ANURIA [None]
  - ARRHYTHMIA [None]
  - HYPERGLYCAEMIA [None]
  - HYPERNATRAEMIA [None]
  - HYPOTENSION [None]
  - LACTIC ACIDOSIS [None]
